FAERS Safety Report 14217061 (Version 1)
Quarter: 2017Q4

REPORT INFORMATION
  Report Type: Report from Study
  Country: CA (occurrence: CA)
  Receive Date: 20171122
  Receipt Date: 20171122
  Transmission Date: 20180321
  Serious: Yes (Other)
  Sender: FDA-Public Use
  Company Number: CA-ROCHE-2022170

PATIENT
  Sex: Male

DRUGS (4)
  1. SENNOSIDE [Concomitant]
     Active Substance: SENNOSIDES
  2. TECENTRIQ [Suspect]
     Active Substance: ATEZOLIZUMAB
     Indication: TRANSITIONAL CELL CARCINOMA
     Route: 042
     Dates: start: 20170622
  3. TAMSULOSIN [Concomitant]
     Active Substance: TAMSULOSIN
  4. DOCUSATE SODIUM. [Concomitant]
     Active Substance: DOCUSATE SODIUM

REACTIONS (2)
  - Weight increased [Unknown]
  - Thyroid disorder [Not Recovered/Not Resolved]
